FAERS Safety Report 25478323 (Version 1)
Quarter: 2025Q2

REPORT INFORMATION
  Report Type: Spontaneous
  Country: CA (occurrence: CA)
  Receive Date: 20250625
  Receipt Date: 20250625
  Transmission Date: 20250717
  Serious: Yes (Life-Threatening, Hospitalization, Disabling, Other)
  Sender: BRISTOL-MYERS SQUIBB COMPANY
  Company Number: CA-BRISTOL-MYERS SQUIBB COMPANY-2025-089423

PATIENT
  Age: 40 Year
  Sex: Female
  Weight: 96 kg

DRUGS (213)
  1. ORENCIA [Suspect]
     Active Substance: ABATACEPT
     Indication: Rheumatoid arthritis
     Route: 058
  2. ORENCIA [Suspect]
     Active Substance: ABATACEPT
     Route: 042
  3. ORENCIA [Suspect]
     Active Substance: ABATACEPT
     Route: 042
  4. ORENCIA [Suspect]
     Active Substance: ABATACEPT
     Route: 058
  5. ORENCIA [Suspect]
     Active Substance: ABATACEPT
  6. ORENCIA [Suspect]
     Active Substance: ABATACEPT
  7. ORENCIA [Suspect]
     Active Substance: ABATACEPT
  8. ORENCIA [Suspect]
     Active Substance: ABATACEPT
     Indication: Product used for unknown indication
  9. TRIAMCINOLONE ACETONIDE [Suspect]
     Active Substance: TRIAMCINOLONE ACETONIDE
     Indication: Rheumatoid arthritis
     Route: 014
  10. VITAMIN C [Concomitant]
     Active Substance: ASCORBIC ACID
     Indication: Product used for unknown indication
  11. SULFASALAZINE [Concomitant]
     Active Substance: SULFASALAZINE
     Indication: Rheumatoid arthritis
     Route: 048
  12. SULFASALAZINE [Concomitant]
     Active Substance: SULFASALAZINE
     Route: 058
  13. SULFASALAZINE [Concomitant]
     Active Substance: SULFASALAZINE
     Route: 048
  14. SULFASALAZINE [Concomitant]
     Active Substance: SULFASALAZINE
  15. SULFASALAZINE [Concomitant]
     Active Substance: SULFASALAZINE
     Route: 048
  16. SULFASALAZINE [Concomitant]
     Active Substance: SULFASALAZINE
     Route: 048
  17. SULFASALAZINE [Concomitant]
     Active Substance: SULFASALAZINE
     Route: 048
  18. SULFASALAZINE [Concomitant]
     Active Substance: SULFASALAZINE
  19. SULFASALAZINE [Concomitant]
     Active Substance: SULFASALAZINE
  20. SULFASALAZINE [Concomitant]
     Active Substance: SULFASALAZINE
     Route: 058
  21. SULFASALAZINE [Concomitant]
     Active Substance: SULFASALAZINE
  22. MINOCYCLINE HYDROCHLORIDE [Concomitant]
     Active Substance: MINOCYCLINE HYDROCHLORIDE
     Indication: Rheumatoid arthritis
  23. LEFLUNOMIDE [Concomitant]
     Active Substance: LEFLUNOMIDE
     Indication: Rheumatoid arthritis
  24. LEFLUNOMIDE [Concomitant]
     Active Substance: LEFLUNOMIDE
     Route: 048
  25. LEFLUNOMIDE [Concomitant]
     Active Substance: LEFLUNOMIDE
  26. LEFLUNOMIDE [Concomitant]
     Active Substance: LEFLUNOMIDE
     Route: 048
  27. LEFLUNOMIDE [Concomitant]
     Active Substance: LEFLUNOMIDE
     Route: 048
  28. LEFLUNOMIDE [Concomitant]
     Active Substance: LEFLUNOMIDE
  29. APREMILAST [Concomitant]
     Active Substance: APREMILAST
     Indication: Rheumatoid arthritis
  30. ARAVA [Concomitant]
     Active Substance: LEFLUNOMIDE
     Indication: Rheumatoid arthritis
     Route: 048
  31. ARAVA [Concomitant]
     Active Substance: LEFLUNOMIDE
     Route: 048
  32. ARAVA [Concomitant]
     Active Substance: LEFLUNOMIDE
     Route: 048
  33. ATOMOXETINE HYDROCHLORIDE [Concomitant]
     Active Substance: ATOMOXETINE HYDROCHLORIDE
     Indication: Migraine
  34. BERINERT [Concomitant]
     Active Substance: HUMAN C1-ESTERASE INHIBITOR
     Indication: Product used for unknown indication
  35. BOTULINUM TOXIN TYPE A [Concomitant]
     Active Substance: BOTULINUM TOXIN TYPE A
     Indication: Product used for unknown indication
  36. BUTRANS [Concomitant]
     Active Substance: BUPRENORPHINE
     Indication: Product used for unknown indication
  37. CALCIUM ASCORBATE [Concomitant]
     Active Substance: CALCIUM ASCORBATE
     Indication: Product used for unknown indication
  38. CALCIUM GLUBIONATE [Concomitant]
     Active Substance: CALCIUM GLUBIONATE
     Indication: Product used for unknown indication
  39. CANDESARTAN [Concomitant]
     Active Substance: CANDESARTAN
     Indication: Migraine
     Route: 048
  40. CELEBREX [Concomitant]
     Active Substance: CELECOXIB
     Indication: Product used for unknown indication
  41. CELEBREX [Concomitant]
     Active Substance: CELECOXIB
     Route: 048
  42. CETIRIZINE HYDROCHLORIDE [Concomitant]
     Active Substance: CETIRIZINE HYDROCHLORIDE
     Indication: Rheumatoid arthritis
     Route: 048
  43. CETIRIZINE HYDROCHLORIDE [Concomitant]
     Active Substance: CETIRIZINE HYDROCHLORIDE
  44. CETIRIZINE HYDROCHLORIDE [Concomitant]
     Active Substance: CETIRIZINE HYDROCHLORIDE
     Route: 048
  45. CETIRIZINE HYDROCHLORIDE [Concomitant]
     Active Substance: CETIRIZINE HYDROCHLORIDE
  46. CETIRIZINE HYDROCHLORIDE [Concomitant]
     Active Substance: CETIRIZINE HYDROCHLORIDE
  47. CIMZIA [Concomitant]
     Active Substance: CERTOLIZUMAB PEGOL
     Indication: Rheumatoid arthritis
     Route: 058
  48. CIMZIA [Concomitant]
     Active Substance: CERTOLIZUMAB PEGOL
     Indication: Psoriasis
     Route: 058
  49. CIMZIA [Concomitant]
     Active Substance: CERTOLIZUMAB PEGOL
     Route: 058
  50. CORTISONE (HYDROCORTISONE) [Concomitant]
     Active Substance: HYDROCORTISONE
     Indication: Rheumatoid arthritis
  51. CORTISONE ACETATE [Concomitant]
     Active Substance: CORTISONE ACETATE
     Indication: Rheumatoid arthritis
  52. CORTISONE ACETATE [Concomitant]
     Active Substance: CORTISONE ACETATE
  53. DESOXIMETASONE [Concomitant]
     Active Substance: DESOXIMETASONE
     Indication: Rheumatoid arthritis
     Route: 048
  54. DESOXIMETASONE [Concomitant]
     Active Substance: DESOXIMETASONE
     Route: 058
  55. DESOXIMETASONE [Concomitant]
     Active Substance: DESOXIMETASONE
     Route: 048
  56. DESOXIMETASONE [Concomitant]
     Active Substance: DESOXIMETASONE
  57. DICLOFENAC POTASSIUM [Concomitant]
     Active Substance: DICLOFENAC POTASSIUM
     Indication: Product used for unknown indication
  58. DICLOFENAC POTASSIUM [Concomitant]
     Active Substance: DICLOFENAC POTASSIUM
  59. DOMPERIDONE MALEATE [Concomitant]
     Active Substance: DOMPERIDONE MALEATE
     Indication: Product used for unknown indication
  60. ENBREL [Concomitant]
     Active Substance: ETANERCEPT
     Indication: Rheumatoid arthritis
  61. ENBREL [Concomitant]
     Active Substance: ETANERCEPT
  62. ENBREL [Concomitant]
     Active Substance: ETANERCEPT
     Route: 058
  63. ENBREL [Concomitant]
     Active Substance: ETANERCEPT
     Route: 058
  64. ENBREL [Concomitant]
     Active Substance: ETANERCEPT
     Route: 058
  65. ENBREL [Concomitant]
     Active Substance: ETANERCEPT
     Route: 058
  66. ERELZI [Concomitant]
     Active Substance: ETANERCEPT-SZZS
     Indication: Rheumatoid arthritis
  67. ERGOCALCIFEROL [Concomitant]
     Active Substance: ERGOCALCIFEROL
     Indication: Product used for unknown indication
  68. FLUMETHASONE PIVALATE [Concomitant]
     Active Substance: FLUMETHASONE PIVALATE
     Indication: Product used for unknown indication
     Route: 058
  69. FLUMETHASONE PIVALATE [Concomitant]
     Active Substance: FLUMETHASONE PIVALATE
  70. FOLIC ACID [Concomitant]
     Active Substance: FOLIC ACID
     Indication: Rheumatoid arthritis
  71. FOLIC ACID [Concomitant]
     Active Substance: FOLIC ACID
  72. FOLIC ACID [Concomitant]
     Active Substance: FOLIC ACID
     Route: 048
  73. FOLIC ACID [Concomitant]
     Active Substance: FOLIC ACID
     Route: 048
  74. FOLIC ACID [Concomitant]
     Active Substance: FOLIC ACID
     Route: 048
  75. FOLIC ACID [Concomitant]
     Active Substance: FOLIC ACID
     Route: 048
  76. FOSAMAX [Concomitant]
     Active Substance: ALENDRONATE SODIUM
     Indication: Rheumatoid arthritis
  77. FOSAMAX [Concomitant]
     Active Substance: ALENDRONATE SODIUM
     Route: 048
  78. GOLD SODIUM THIOMALATE [Concomitant]
     Active Substance: GOLD SODIUM THIOMALATE
     Indication: Product used for unknown indication
  79. GOLIMUMAB [Concomitant]
     Active Substance: GOLIMUMAB
     Indication: Rheumatoid arthritis
  80. GOLIMUMAB [Concomitant]
     Active Substance: GOLIMUMAB
     Indication: Prostatic specific antigen
     Route: 058
  81. HUMIRA [Concomitant]
     Active Substance: ADALIMUMAB
     Indication: Rheumatoid arthritis
  82. HUMIRA [Concomitant]
     Active Substance: ADALIMUMAB
     Route: 058
  83. HYDROXYCHLOROQUINE [Concomitant]
     Active Substance: HYDROXYCHLOROQUINE
     Indication: Rheumatoid arthritis
  84. HYDROXYCHLOROQUINE [Concomitant]
     Active Substance: HYDROXYCHLOROQUINE
  85. HYDROXYCHLOROQUINE [Concomitant]
     Active Substance: HYDROXYCHLOROQUINE
  86. HYDROXYCHLOROQUINE [Concomitant]
     Active Substance: HYDROXYCHLOROQUINE
     Route: 048
  87. HYDROXYCHLOROQUINE [Concomitant]
     Active Substance: HYDROXYCHLOROQUINE
     Route: 048
  88. HYDROXYCHLOROQUINE [Concomitant]
     Active Substance: HYDROXYCHLOROQUINE
     Route: 058
  89. HYDROXYCHLOROQUINE [Concomitant]
     Active Substance: HYDROXYCHLOROQUINE
  90. HYDROXYCHLOROQUINE SULFATE [Concomitant]
     Active Substance: HYDROXYCHLOROQUINE SULFATE
     Indication: Rheumatoid arthritis
  91. INFLIXIMAB [Concomitant]
     Active Substance: INFLIXIMAB
     Indication: Rheumatoid arthritis
     Route: 042
  92. INFLIXIMAB [Concomitant]
     Active Substance: INFLIXIMAB
     Route: 042
  93. INFLIXIMAB [Concomitant]
     Active Substance: INFLIXIMAB
     Route: 042
  94. INFLIXIMAB [Concomitant]
     Active Substance: INFLIXIMAB
     Route: 042
  95. INFLIXIMAB [Concomitant]
     Active Substance: INFLIXIMAB
     Route: 058
  96. ISOPROPYL ALCOHOL [Concomitant]
     Active Substance: ISOPROPYL ALCOHOL
     Indication: Product used for unknown indication
  97. LAMICTAL [Concomitant]
     Active Substance: LAMOTRIGINE
     Indication: Product used for unknown indication
     Route: 048
  98. LAMICTAL [Concomitant]
     Active Substance: LAMOTRIGINE
     Route: 048
  99. MAGNESIUM CITRATE [Concomitant]
     Active Substance: MAGNESIUM CITRATE
     Indication: Product used for unknown indication
  100. METFORMIN [Concomitant]
     Active Substance: METFORMIN HYDROCHLORIDE
     Indication: Product used for unknown indication
     Route: 042
  101. METHOTREXATE [Concomitant]
     Active Substance: METHOTREXATE
     Indication: Rheumatoid arthritis
  102. METHOTREXATE [Concomitant]
     Active Substance: METHOTREXATE
  103. METHOTREXATE [Concomitant]
     Active Substance: METHOTREXATE
  104. METHOTREXATE [Concomitant]
     Active Substance: METHOTREXATE
     Route: 048
  105. METHOTREXATE [Concomitant]
     Active Substance: METHOTREXATE
     Route: 048
  106. METHOTREXATE [Concomitant]
     Active Substance: METHOTREXATE
     Route: 048
  107. METHOTREXATE [Concomitant]
     Active Substance: METHOTREXATE
     Route: 058
  108. METHOTREXATE [Concomitant]
     Active Substance: METHOTREXATE
     Route: 048
  109. METHYLPREDNISOLONE SODIUM SUCCINATE [Concomitant]
     Active Substance: METHYLPREDNISOLONE SODIUM SUCCINATE
     Indication: Product used for unknown indication
  110. METHYLPREDNISOLONE SODIUM SUCCINATE [Concomitant]
     Active Substance: METHYLPREDNISOLONE SODIUM SUCCINATE
  111. MYRBETRIQ [Concomitant]
     Active Substance: MIRABEGRON
     Indication: Product used for unknown indication
  112. MYRBETRIQ [Concomitant]
     Active Substance: MIRABEGRON
  113. NAPROXEN [Concomitant]
     Active Substance: NAPROXEN
     Indication: Product used for unknown indication
  114. NAPROXEN [Concomitant]
     Active Substance: NAPROXEN
  115. NAPROXEN [Concomitant]
     Active Substance: NAPROXEN
  116. NEOMYCIN SULFATE [Concomitant]
     Active Substance: NEOMYCIN SULFATE
     Indication: Rheumatoid arthritis
  117. NUCALA [Concomitant]
     Active Substance: MEPOLIZUMAB
     Indication: Product used for unknown indication
  118. OXYCODONE [Concomitant]
     Active Substance: OXYCODONE
     Indication: Product used for unknown indication
  119. OXYCODONE TEREPHTHALATE [Concomitant]
     Active Substance: OXYCODONE TEREPHTHALATE
     Indication: Product used for unknown indication
  120. PERIOGARD [Concomitant]
     Active Substance: CHLORHEXIDINE GLUCONATE
     Indication: Product used for unknown indication
  121. PHTHALYLSULFATHIAZOLE [Concomitant]
     Active Substance: PHTHALYLSULFATHIAZOLE
     Indication: Rheumatoid arthritis
     Route: 058
  122. PHTHALYLSULFATHIAZOLE [Concomitant]
     Active Substance: PHTHALYLSULFATHIAZOLE
     Route: 042
  123. PHTHALYLSULFATHIAZOLE [Concomitant]
     Active Substance: PHTHALYLSULFATHIAZOLE
     Route: 048
  124. PHTHALYLSULFATHIAZOLE [Concomitant]
     Active Substance: PHTHALYLSULFATHIAZOLE
     Route: 048
  125. PSEUDOEPHEDRINE HYDROCHLORIDE [Concomitant]
     Active Substance: PSEUDOEPHEDRINE HYDROCHLORIDE
     Indication: Rheumatoid arthritis
  126. PSEUDOEPHEDRINE HYDROCHLORIDE [Concomitant]
     Active Substance: PSEUDOEPHEDRINE HYDROCHLORIDE
  127. PSEUDOEPHEDRINE HYDROCHLORIDE [Concomitant]
     Active Substance: PSEUDOEPHEDRINE HYDROCHLORIDE
  128. RAMIPRIL [Concomitant]
     Active Substance: RAMIPRIL
     Indication: Rheumatoid arthritis
  129. RAMIPRIL [Concomitant]
     Active Substance: RAMIPRIL
     Route: 042
  130. RAMIPRIL [Concomitant]
     Active Substance: RAMIPRIL
     Route: 016
  131. RANITIDINE HYDROCHLORIDE [Concomitant]
     Active Substance: RANITIDINE HYDROCHLORIDE
     Indication: Product used for unknown indication
  132. CETIRIZINE HYDROCHLORIDE [Concomitant]
     Active Substance: CETIRIZINE HYDROCHLORIDE
     Indication: Rheumatoid arthritis
  133. CETIRIZINE HYDROCHLORIDE [Concomitant]
     Active Substance: CETIRIZINE HYDROCHLORIDE
     Route: 048
  134. CETIRIZINE HYDROCHLORIDE [Concomitant]
     Active Substance: CETIRIZINE HYDROCHLORIDE
  135. CETIRIZINE HYDROCHLORIDE [Concomitant]
     Active Substance: CETIRIZINE HYDROCHLORIDE
     Route: 048
  136. CETIRIZINE HYDROCHLORIDE [Concomitant]
     Active Substance: CETIRIZINE HYDROCHLORIDE
  137. CETIRIZINE HYDROCHLORIDE [Concomitant]
     Active Substance: CETIRIZINE HYDROCHLORIDE
  138. CETIRIZINE HYDROCHLORIDE [Concomitant]
     Active Substance: CETIRIZINE HYDROCHLORIDE
     Route: 048
  139. CETIRIZINE HYDROCHLORIDE\PSEUDOEPHEDRINE HYDROCHLORIDE [Concomitant]
     Active Substance: CETIRIZINE HYDROCHLORIDE\PSEUDOEPHEDRINE HYDROCHLORIDE
     Indication: Rheumatoid arthritis
  140. CETIRIZINE HYDROCHLORIDE\PSEUDOEPHEDRINE HYDROCHLORIDE [Concomitant]
     Active Substance: CETIRIZINE HYDROCHLORIDE\PSEUDOEPHEDRINE HYDROCHLORIDE
  141. CETIRIZINE HYDROCHLORIDE\PSEUDOEPHEDRINE HYDROCHLORIDE [Concomitant]
     Active Substance: CETIRIZINE HYDROCHLORIDE\PSEUDOEPHEDRINE HYDROCHLORIDE
  142. REMICADE [Concomitant]
     Active Substance: INFLIXIMAB
     Indication: Rheumatoid arthritis
     Route: 058
  143. REMICADE [Concomitant]
     Active Substance: INFLIXIMAB
     Dosage: POWDER FOR SOLUTION INTRAVENOUS
     Route: 040
  144. REMICADE [Concomitant]
     Active Substance: INFLIXIMAB
     Route: 042
  145. RIBOFLAVIN [Concomitant]
     Active Substance: RIBOFLAVIN
     Indication: Product used for unknown indication
  146. RITUXIMAB [Concomitant]
     Active Substance: RITUXIMAB
     Indication: Rheumatoid arthritis
     Route: 058
  147. RITUXIMAB [Concomitant]
     Active Substance: RITUXIMAB
  148. RITUXIMAB [Concomitant]
     Active Substance: RITUXIMAB
     Route: 042
  149. RITUXIMAB [Concomitant]
     Active Substance: RITUXIMAB
     Route: 042
  150. RITUXIMAB [Concomitant]
     Active Substance: RITUXIMAB
     Route: 042
  151. RITUXIMAB [Concomitant]
     Active Substance: RITUXIMAB
     Route: 043
  152. RITUXIMAB [Concomitant]
     Active Substance: RITUXIMAB
  153. RITUXIMAB [Concomitant]
     Active Substance: RITUXIMAB
     Route: 040
  154. SIMPONI [Concomitant]
     Active Substance: GOLIMUMAB
     Indication: Rheumatoid arthritis
     Route: 058
  155. SIMPONI [Concomitant]
     Active Substance: GOLIMUMAB
     Route: 058
  156. SIMPONI [Concomitant]
     Active Substance: GOLIMUMAB
     Route: 058
  157. SIRUKUMAB [Concomitant]
     Active Substance: SIRUKUMAB
     Indication: Product used for unknown indication
  158. GOLD SODIUM THIOMALATE [Concomitant]
     Active Substance: GOLD SODIUM THIOMALATE
     Indication: Product used for unknown indication
     Route: 048
  159. GOLD SODIUM THIOMALATE [Concomitant]
     Active Substance: GOLD SODIUM THIOMALATE
     Route: 030
  160. SULFAMETHOXAZOLE [Concomitant]
     Active Substance: SULFAMETHOXAZOLE
     Indication: Product used for unknown indication
  161. THIAMINE HYDROCHLORIDE [Concomitant]
     Active Substance: THIAMINE HYDROCHLORIDE
     Indication: Product used for unknown indication
  162. TOCILIZUMAB [Concomitant]
     Active Substance: TOCILIZUMAB
     Indication: Rheumatoid arthritis
     Route: 042
  163. TOCILIZUMAB [Concomitant]
     Active Substance: TOCILIZUMAB
     Route: 042
  164. TOCILIZUMAB [Concomitant]
     Active Substance: TOCILIZUMAB
     Route: 058
  165. TOCILIZUMAB [Concomitant]
     Active Substance: TOCILIZUMAB
     Route: 048
  166. TOCILIZUMAB [Concomitant]
     Active Substance: TOCILIZUMAB
  167. TOCILIZUMAB [Concomitant]
     Active Substance: TOCILIZUMAB
     Route: 058
  168. TOCILIZUMAB [Concomitant]
     Active Substance: TOCILIZUMAB
  169. TOCILIZUMAB [Concomitant]
     Active Substance: TOCILIZUMAB
  170. TOPIRAMATE [Concomitant]
     Active Substance: TOPIRAMATE
     Indication: Migraine
  171. TOPIRAMATE [Concomitant]
     Active Substance: TOPIRAMATE
  172. TRAMADOL HYDROCHLORIDE [Concomitant]
     Active Substance: TRAMADOL HYDROCHLORIDE
     Indication: Product used for unknown indication
  173. AIMOVIG [Concomitant]
     Active Substance: ERENUMAB-AOOE
     Indication: Migraine
  174. TUMS [Concomitant]
     Active Substance: CALCIUM CARBONATE
     Indication: Product used for unknown indication
  175. USTEKINUMAB [Concomitant]
     Active Substance: USTEKINUMAB
     Indication: Rheumatoid arthritis
     Route: 058
  176. USTEKINUMAB [Concomitant]
     Active Substance: USTEKINUMAB
  177. VITAMIN A [Concomitant]
     Active Substance: VITAMIN A
     Indication: Product used for unknown indication
  178. VITAMIN D NOS [Concomitant]
     Active Substance: CHOLECALCIFEROL\ERGOCALCIFEROL
     Indication: Product used for unknown indication
  179. DICLOFENAC DIETHYLAMINE [Concomitant]
     Active Substance: DICLOFENAC DIETHYLAMINE
     Indication: Product used for unknown indication
  180. XELJANZ [Concomitant]
     Active Substance: TOFACITINIB CITRATE
     Indication: Rheumatoid arthritis
     Route: 048
  181. XELJANZ [Concomitant]
     Active Substance: TOFACITINIB CITRATE
     Route: 048
  182. XELJANZ [Concomitant]
     Active Substance: TOFACITINIB CITRATE
     Route: 048
  183. XELJANZ [Concomitant]
     Active Substance: TOFACITINIB CITRATE
  184. XELJANZ [Concomitant]
     Active Substance: TOFACITINIB CITRATE
     Route: 048
  185. ACTEMRA [Concomitant]
     Active Substance: TOCILIZUMAB
     Indication: Rheumatoid arthritis
     Route: 042
  186. ACTEMRA [Concomitant]
     Active Substance: TOCILIZUMAB
     Route: 042
  187. ACTEMRA [Concomitant]
     Active Substance: TOCILIZUMAB
     Route: 042
  188. ACTEMRA [Concomitant]
     Active Substance: TOCILIZUMAB
     Route: 042
  189. ACTEMRA [Concomitant]
     Active Substance: TOCILIZUMAB
     Route: 042
  190. ACTEMRA [Concomitant]
     Active Substance: TOCILIZUMAB
  191. ACTEMRA [Concomitant]
     Active Substance: TOCILIZUMAB
  192. ACTEMRA [Concomitant]
     Active Substance: TOCILIZUMAB
     Route: 042
  193. ACTEMRA [Concomitant]
     Active Substance: TOCILIZUMAB
     Route: 058
  194. ACTEMRA [Concomitant]
     Active Substance: TOCILIZUMAB
     Route: 058
  195. ACTEMRA [Concomitant]
     Active Substance: TOCILIZUMAB
     Route: 058
  196. ACTEMRA [Concomitant]
     Active Substance: TOCILIZUMAB
     Route: 058
  197. ACTEMRA [Concomitant]
     Active Substance: TOCILIZUMAB
     Route: 058
  198. PREDNISONE [Concomitant]
     Active Substance: PREDNISONE
     Indication: Rheumatoid arthritis
     Route: 048
  199. PREDNISONE [Concomitant]
     Active Substance: PREDNISONE
  200. PREDNISONE [Concomitant]
     Active Substance: PREDNISONE
  201. PREDNISONE [Concomitant]
     Active Substance: PREDNISONE
     Route: 048
  202. PREDNISONE [Concomitant]
     Active Substance: PREDNISONE
  203. PREDNISONE [Concomitant]
     Active Substance: PREDNISONE
  204. PREDNISONE [Concomitant]
     Active Substance: PREDNISONE
     Route: 048
  205. PREDNISONE [Concomitant]
     Active Substance: PREDNISONE
     Route: 048
  206. PREDNISONE [Concomitant]
     Active Substance: PREDNISONE
  207. ALENDRONIC ACID [Concomitant]
     Active Substance: ALENDRONIC ACID
     Indication: Rheumatoid arthritis
     Route: 048
  208. ADALIMUMAB [Concomitant]
     Active Substance: ADALIMUMAB
     Indication: Product used for unknown indication
     Route: 058
  209. ADALIMUMAB [Concomitant]
     Active Substance: ADALIMUMAB
     Route: 058
  210. ACETAMINOPHEN [Concomitant]
     Active Substance: ACETAMINOPHEN
     Indication: Rheumatoid arthritis
  211. ACETAMINOPHEN [Concomitant]
     Active Substance: ACETAMINOPHEN
  212. COSENTYX [Concomitant]
     Active Substance: SECUKINUMAB
     Indication: Psoriatic arthropathy
  213. DESOGESTREL ETHINYLESTRADIOL BIOGARAN [Concomitant]
     Indication: Product used for unknown indication

REACTIONS (33)
  - C-reactive protein abnormal [Unknown]
  - C-reactive protein increased [Unknown]
  - Confusional state [Unknown]
  - Drug hypersensitivity [Unknown]
  - Drug ineffective [Unknown]
  - Dyspnoea [Unknown]
  - Ill-defined disorder [Unknown]
  - Infusion related reaction [Unknown]
  - Injection site reaction [Unknown]
  - Nausea [Unknown]
  - Onychomadesis [Unknown]
  - Onychomycosis [Unknown]
  - Overdose [Unknown]
  - Pain [Unknown]
  - Pemphigus [Unknown]
  - Pericarditis [Unknown]
  - Product use in unapproved indication [Unknown]
  - Product use issue [Unknown]
  - Psoriatic arthropathy [Unknown]
  - Rash [Unknown]
  - Rheumatic fever [Unknown]
  - Rheumatoid arthritis [Unknown]
  - Sleep disorder [Unknown]
  - Swelling [Unknown]
  - Synovitis [Unknown]
  - Systemic lupus erythematosus [Unknown]
  - Therapeutic product effect decreased [Unknown]
  - Therapeutic product effect incomplete [Unknown]
  - Treatment failure [Unknown]
  - Type 2 diabetes mellitus [Unknown]
  - Wound [Unknown]
  - Adverse event [Unknown]
  - Hospitalisation [Unknown]
